FAERS Safety Report 25521952 (Version 1)
Quarter: 2025Q3

REPORT INFORMATION
  Report Type: Report from Study
  Country: US (occurrence: US)
  Receive Date: 20250706
  Receipt Date: 20250706
  Transmission Date: 20251021
  Serious: Yes (Other)
  Sender: ABBVIE
  Company Number: US-ABBVIE-6356364

PATIENT
  Age: 50 Year
  Sex: Female

DRUGS (2)
  1. BOTOX [Suspect]
     Active Substance: ONABOTULINUMTOXINA
     Indication: Migraine
     Route: 065
     Dates: start: 2001, end: 2001
  2. BOTOX [Suspect]
     Active Substance: ONABOTULINUMTOXINA
     Indication: Migraine
     Route: 065
     Dates: start: 2020, end: 2020

REACTIONS (5)
  - Breast cancer stage III [Unknown]
  - Thyroid gland injury [Unknown]
  - Blood cholesterol increased [Unknown]
  - Memory impairment [Unknown]
  - Depression [Unknown]

NARRATIVE: CASE EVENT DATE: 20100101
